FAERS Safety Report 25418223 (Version 1)
Quarter: 2025Q2

REPORT INFORMATION
  Report Type: Spontaneous
  Country: US (occurrence: US)
  Receive Date: 20250610
  Receipt Date: 20250610
  Transmission Date: 20250717
  Serious: No
  Sender: MERCK SHARP & DOHME LLC
  Company Number: US-009507513-2287635

PATIENT
  Age: 63 Year
  Sex: Female

DRUGS (9)
  1. IVERMECTIN [Suspect]
     Active Substance: IVERMECTIN
     Route: 048
     Dates: start: 20250417
  2. SERTRALINE [Concomitant]
     Active Substance: SERTRALINE HYDROCHLORIDE
  3. BENADRYL [Concomitant]
     Active Substance: DIPHENHYDRAMINE HYDROCHLORIDE
  4. KEYTRUDA [Concomitant]
     Active Substance: PEMBROLIZUMAB
     Indication: Endometrial cancer
     Dates: start: 20241217
  5. ZINC [Concomitant]
     Active Substance: ZINC
     Dates: start: 20250402
  6. MEBENDAZOLE [Concomitant]
     Active Substance: MEBENDAZOLE
     Dates: start: 20250407
  7. ADVIL [Concomitant]
     Active Substance: IBUPROFEN
  8. VITAMIN C [Concomitant]
     Active Substance: ASCORBIC ACID
     Dates: start: 20250402
  9. VITAMIN D [Concomitant]
     Active Substance: VITAMIN D NOS
     Dates: start: 20250402

REACTIONS (1)
  - Product prescribing issue [Unknown]

NARRATIVE: CASE EVENT DATE: 20250417
